FAERS Safety Report 12382501 (Version 1)
Quarter: 2016Q2

REPORT INFORMATION
  Report Type: Report from Study
  Country: US (occurrence: US)
  Receive Date: 20160518
  Receipt Date: 20160518
  Transmission Date: 20160815
  Serious: No
  Sender: FDA-Public Use
  Company Number: US-MALLINCKRODT-T201502539

PATIENT
  Age: 51 Year
  Sex: Female
  Weight: 70 kg

DRUGS (4)
  1. ULTRACET [Concomitant]
     Active Substance: ACETAMINOPHEN\TRAMADOL HYDROCHLORIDE
     Indication: PAIN
     Dosage: 37.5/325 MG BID
     Route: 048
  2. REPOSITORY CORTICOTROPIN INJECTION [Suspect]
     Active Substance: CORTICOTROPIN
     Dosage: UNK, ONE INJECTION DAILY FOR FIVE DAYS
     Route: 065
     Dates: start: 20150420, end: 20150424
  3. REPOSITORY CORTICOTROPIN INJECTION [Suspect]
     Active Substance: CORTICOTROPIN
     Indication: MULTIPLE SCLEROSIS
     Dosage: UNK, ONE INJECTION DAILY FOR A TOTAL OF FIVE DAYS
     Dates: start: 2013, end: 2013
  4. TIZANIDINE. [Concomitant]
     Active Substance: TIZANIDINE
     Dosage: 2MG
     Route: 048

REACTIONS (14)
  - Oral mucosal erythema [Recovered/Resolved]
  - Oral pain [Not Recovered/Not Resolved]
  - Asthenia [Not Recovered/Not Resolved]
  - Cushingoid [Unknown]
  - Vision blurred [Not Recovered/Not Resolved]
  - Insomnia [Not Recovered/Not Resolved]
  - Blood potassium decreased [Unknown]
  - Urinary tract infection [Not Recovered/Not Resolved]
  - Glossodynia [Recovered/Resolved]
  - Oral discomfort [Recovered/Resolved]
  - Dyspepsia [Recovered/Resolved]
  - Erythema [Unknown]
  - Stomatitis [Recovered/Resolved]
  - Feeding disorder [Unknown]

NARRATIVE: CASE EVENT DATE: 2013
